FAERS Safety Report 23094316 (Version 2)
Quarter: 2023Q4

REPORT INFORMATION
  Report Type: Report from Study
  Country: FR (occurrence: FR)
  Receive Date: 20231023
  Receipt Date: 20231101
  Transmission Date: 20240110
  Serious: Yes (Disabling)
  Sender: FDA-Public Use
  Company Number: FR-ABBVIE-5459255

PATIENT
  Age: 84 Year
  Sex: Female

DRUGS (2)
  1. CARBIDOPA\LEVODOPA [Suspect]
     Active Substance: CARBIDOPA\LEVODOPA
     Indication: Parkinson^s disease
     Dosage: MORNING DOSE: 10 ML, CONTINUOUS FLOW RATE DURING THE DAY: 4.6 ML/H, EXTRA DOSE: 3 ML
     Route: 050
     Dates: start: 20150925, end: 2023
  2. CARBIDOPA\LEVODOPA [Suspect]
     Active Substance: CARBIDOPA\LEVODOPA
     Dosage: MORNING DOSE: 10 ML, CONTINUOUS FLOW RATE DURING THE DAY: 4 ML/H, EXTRA DOSE: 3 ML
     Route: 050
     Dates: start: 2023

REACTIONS (8)
  - Dyskinesia [Unknown]
  - Weight decreased [Unknown]
  - Loss of personal independence in daily activities [Unknown]
  - Rest regimen [Unknown]
  - Hyperhidrosis [Unknown]
  - Fatigue [Unknown]
  - General physical health deterioration [Unknown]
  - Fall [Unknown]

NARRATIVE: CASE EVENT DATE: 20230101
